FAERS Safety Report 4870423-5 (Version None)
Quarter: 2006Q1

REPORT INFORMATION
  Report Type: 
  Country: None (occurrence: None)
  Receive Date: 20060103
  Receipt Date: 20050201
  Transmission Date: 20060701
  Serious: No
  Sender: FDA-Public Use
  Company Number: US-BRISTOL-MYERS SQUIBB COMPANY-12844452

PATIENT
  Age: 5 Decade
  Sex: Female

DRUGS (2)
  1. TRAZODONE HCL [Suspect]
     Dosage: DOSE VALUE:  300 MG AM AND 150 MG PM.  DOSE THEN CHANGED TO 150 MG TWICE DAILY IN DEC-2004.
     Dates: end: 20041201
  2. WELLBUTRIN [Concomitant]
     Dates: end: 20041201

REACTIONS (1)
  - ARTHRALGIA [None]
